FAERS Safety Report 9421188 (Version 1)
Quarter: 2013Q3

REPORT INFORMATION
  Report Type: Report from Study
  Country: ES (occurrence: ES)
  Receive Date: 20130725
  Receipt Date: 20130725
  Transmission Date: 20140515
  Serious: Yes (Death, Life-Threatening, Hospitalization)
  Sender: FDA-Public Use
  Company Number: ES-BAXTER-2013BAX015893

PATIENT
  Age: 63 Year
  Sex: Male
  Weight: 55 kg

DRUGS (22)
  1. GENOXAL 1 G INYECTABLE [Suspect]
     Indication: CHEMOTHERAPY
     Route: 065
     Dates: start: 20130404
  2. GENOXAL 1 G INYECTABLE [Suspect]
     Indication: DIFFUSE LARGE B-CELL LYMPHOMA
     Route: 065
     Dates: start: 20130424
  3. GENOXAL 1 G INYECTABLE [Suspect]
     Route: 065
     Dates: start: 20130508
  4. RITUXIMAB [Suspect]
     Indication: DIFFUSE LARGE B-CELL LYMPHOMA
     Route: 042
     Dates: start: 20130403
  5. PREDNISOLONE [Suspect]
     Indication: CHEMOTHERAPY
     Route: 065
     Dates: start: 20130404
  6. PREDNISOLONE [Suspect]
     Route: 065
     Dates: start: 20130408
  7. PREDNISOLONE [Suspect]
     Route: 065
     Dates: start: 20130508
  8. PREDNISOLONE [Suspect]
     Route: 065
     Dates: start: 20130512
  9. DOXORUBICIN [Suspect]
     Indication: CHEMOTHERAPY
     Route: 065
     Dates: start: 20130404
  10. DOXORUBICIN [Suspect]
     Indication: DIFFUSE LARGE B-CELL LYMPHOMA
     Route: 065
     Dates: start: 20130424
  11. DOXORUBICIN [Suspect]
     Route: 065
     Dates: start: 20130508
  12. VINCRISTINE [Suspect]
     Indication: CHEMOTHERAPY
     Route: 065
     Dates: start: 20130404
  13. VINCRISTINE [Suspect]
     Indication: DIFFUSE LARGE B-CELL LYMPHOMA
     Route: 065
     Dates: start: 20130424
  14. VINCRISTINE [Suspect]
     Route: 065
     Dates: start: 20130508
  15. RHUPH20 [Suspect]
     Indication: DIFFUSE LARGE B-CELL LYMPHOMA
     Route: 058
     Dates: start: 20130424
  16. RHUPH20 [Suspect]
     Route: 058
     Dates: start: 20130508
  17. RITUXIMAB [Suspect]
     Indication: DIFFUSE LARGE B-CELL LYMPHOMA
     Route: 058
     Dates: start: 20130424
  18. RITUXIMAB [Suspect]
     Route: 058
     Dates: start: 20130508
  19. ESOMEPRAZOLE [Concomitant]
     Indication: PRODUCT USED FOR UNKNOWN INDICATION
     Route: 048
     Dates: start: 20130326
  20. ALLOPURINOL [Concomitant]
     Indication: PRODUCT USED FOR UNKNOWN INDICATION
     Route: 048
     Dates: start: 20130326
  21. LORAZEPAM [Concomitant]
     Indication: PRODUCT USED FOR UNKNOWN INDICATION
     Route: 048
     Dates: start: 20130201
  22. OMEPRAZOLE [Concomitant]
     Indication: PRODUCT USED FOR UNKNOWN INDICATION

REACTIONS (5)
  - Pancytopenia [Recovered/Resolved]
  - Febrile neutropenia [Not Recovered/Not Resolved]
  - Peritonitis [Fatal]
  - Intestinal perforation [Fatal]
  - Ileal perforation [Not Recovered/Not Resolved]
